FAERS Safety Report 24719619 (Version 2)
Quarter: 2024Q4

REPORT INFORMATION
  Report Type: Spontaneous
  Country: US (occurrence: US)
  Receive Date: 20241211
  Receipt Date: 20241217
  Transmission Date: 20250114
  Serious: No
  Sender: ROCHE
  Company Number: US-ROCHE-10000152366

PATIENT
  Sex: Male
  Weight: 86.18 kg

DRUGS (4)
  1. AVASTIN [Suspect]
     Active Substance: BEVACIZUMAB
     Indication: Brain cancer metastatic
     Route: 042
     Dates: start: 202408
  2. KEPPRA XR [Concomitant]
     Active Substance: LEVETIRACETAM
     Route: 048
  3. MEMANTINE [Concomitant]
     Active Substance: MEMANTINE
  4. CORTISONE [Concomitant]
     Active Substance: CORTISONE

REACTIONS (3)
  - Arthralgia [Not Recovered/Not Resolved]
  - Pain [Not Recovered/Not Resolved]
  - Off label use [Unknown]

NARRATIVE: CASE EVENT DATE: 20240801
